FAERS Safety Report 5067914-3 (Version None)
Quarter: 2006Q3

REPORT INFORMATION
  Report Type: 
  Country: None (occurrence: None)
  Receive Date: 20060714
  Receipt Date: 20051112
  Transmission Date: 20061208
  Serious: Yes (Other)
  Sender: FDA-Public Use
  Company Number: HQWYE576816NOV05

PATIENT
  Age: 16 Year
  Sex: Female
  Weight: 49.94 kg

DRUGS (1)
  1. ADVIL [Suspect]
     Dosage: 27 TABLETS AT ONE TIME, ORAL
     Route: 048
     Dates: start: 20051110, end: 20051110

REACTIONS (2)
  - OVERDOSE [None]
  - VOMITING [None]
